FAERS Safety Report 7822359-5 (Version None)
Quarter: 2011Q4

REPORT INFORMATION
  Report Type: 
  Country: None (occurrence: None)
  Receive Date: 20111018
  Receipt Date: 20111003
  Transmission Date: 20120403
  Serious: Yes (Other)
  Sender: FDA-Public Use
  Company Number: ES-WATSON-2011-16415

PATIENT
  Age: 82 Year
  Sex: Female

DRUGS (7)
  1. INDAPAMIDE [Suspect]
     Indication: PRODUCT USED FOR UNKNOWN INDICATION
  2. ACETAMINOPHEN [Suspect]
     Indication: NASOPHARYNGITIS
     Dosage: 650 MG, DAILY
     Route: 048
  3. DEXTROMETHORPHAN HYDROBROMIDE [Suspect]
     Indication: PRODUCT USED FOR UNKNOWN INDICATION
  4. CHLORPHENIRAMINE MALEATE [Suspect]
     Indication: PRODUCT USED FOR UNKNOWN INDICATION
  5. TOCOPHEROL CONCENTRATE CAP [Suspect]
     Indication: PRODUCT USED FOR UNKNOWN INDICATION
  6. METAMIZOL                          /06276702/ [Suspect]
     Indication: PRODUCT USED FOR UNKNOWN INDICATION
  7. INDOMETHACIN [Suspect]
     Indication: PRODUCT USED FOR UNKNOWN INDICATION

REACTIONS (4)
  - THROMBOCYTOPENIA [None]
  - LIVER INJURY [None]
  - HYPERSENSITIVITY [None]
  - HEPATOCELLULAR INJURY [None]
